FAERS Safety Report 16070452 (Version 2)
Quarter: 2019Q2

REPORT INFORMATION
  Report Type: Spontaneous
  Country: CZ (occurrence: CZ)
  Receive Date: 20190314
  Receipt Date: 20190405
  Transmission Date: 20190711
  Serious: Yes (Death, Life-Threatening, Hospitalization, Other)
  Sender: FDA-Public Use
  Company Number: CZ-AUROBINDO-AUR-APL-2019-013168

PATIENT

DRUGS (5)
  1. BETAXOLOL HYDROCHLORIDE. [Suspect]
     Active Substance: BETAXOLOL HYDROCHLORIDE
     Indication: HYPERTENSION
     Dosage: 20 MILLIGRAM, ONCE A DAY
     Route: 048
  2. URAPIDIL [Suspect]
     Active Substance: URAPIDIL
     Indication: BLOOD PRESSURE MANAGEMENT
     Dosage: UNK
     Route: 048
  3. URAPIDIL [Suspect]
     Active Substance: URAPIDIL
     Indication: HYPERTENSION
     Dosage: UNK
     Route: 042
  4. METOPROLOL. [Suspect]
     Active Substance: METOPROLOL
     Indication: HYPERTENSION
     Dosage: UNK
     Route: 042
  5. METOPROLOL. [Suspect]
     Active Substance: METOPROLOL
     Indication: BLOOD PRESSURE MANAGEMENT
     Dosage: UNK
     Route: 048

REACTIONS (14)
  - Cardiac tamponade [Unknown]
  - Blood pressure increased [Unknown]
  - Tachycardia [Unknown]
  - Chest pain [Unknown]
  - Coma [Fatal]
  - Disease progression [Unknown]
  - Drug ineffective [Unknown]
  - Neurological decompensation [Fatal]
  - Aortic dissection [Unknown]
  - Disease recurrence [Unknown]
  - Cerebellar ischaemia [Fatal]
  - Pain [Unknown]
  - Hypertension [Recovered/Resolved]
  - Altered state of consciousness [Unknown]
